FAERS Safety Report 5538328-4 (Version None)
Quarter: 2007Q4

REPORT INFORMATION
  Report Type: 
  Country: None (occurrence: None)
  Receive Date: 20071205
  Receipt Date: 20071128
  Transmission Date: 20080405
  Serious: Yes (Hospitalization)
  Sender: FDA-Public Use
  Company Number: 2007PV033771

PATIENT
  Age: 73 Year
  Sex: Male
  Weight: 136.0791 kg

DRUGS (4)
  1. SYMLIN [Suspect]
     Indication: TYPE 2 DIABETES MELLITUS
     Dosage: 120 MCG; BID; SC; 60 MCG; BID; SC
     Route: 058
     Dates: start: 20070801, end: 20070901
  2. SYMLIN [Suspect]
     Indication: TYPE 2 DIABETES MELLITUS
     Dosage: 120 MCG; BID; SC; 60 MCG; BID; SC
     Route: 058
     Dates: start: 20070901
  3. LANTUS [Concomitant]
  4. HUMULIN 70/30 [Concomitant]

REACTIONS (3)
  - BLOOD GLUCOSE INCREASED [None]
  - DEHYDRATION [None]
  - SEPSIS [None]
